FAERS Safety Report 14961793 (Version 1)
Quarter: 2018Q2

REPORT INFORMATION
  Report Type: Spontaneous
  Country: GB (occurrence: FR)
  Receive Date: 20180601
  Receipt Date: 20180601
  Transmission Date: 20180711
  Serious: Yes (Death, Hospitalization, Other)
  Sender: FDA-Public Use
  Company Number: FR-TEVA-2018-FR-900517

PATIENT
  Age: 28 Year
  Sex: Male
  Weight: 114 kg

DRUGS (18)
  1. DOLIPRANE [Suspect]
     Active Substance: ACETAMINOPHEN
     Dosage: 2 DF, AM
     Route: 048
  2. LEPTICUR [Suspect]
     Active Substance: TROPATEPINE HYDROCHLORIDE
     Dosage: 20 MG, QD (1 DF AM AND PM)
     Route: 048
  3. LOXAPAC [Concomitant]
     Active Substance: LOXAPINE
     Dosage: 300 MILLIGRAM DAILY;
     Route: 048
     Dates: start: 20160517
  4. LOXAPAC [Concomitant]
     Active Substance: LOXAPINE
     Dosage: 300 MILLIGRAM DAILY;
     Route: 048
     Dates: start: 20160517
  5. DOLIPRANE [Suspect]
     Active Substance: ACETAMINOPHEN
     Indication: PRODUCT USED FOR UNKNOWN INDICATION
     Dosage: 2 DOSAGE FORMS DAILY; 2 DF, PM
     Route: 048
  6. LEPTICUR [Suspect]
     Active Substance: TROPATEPINE HYDROCHLORIDE
     Dosage: 1 DF, AM
     Route: 048
  7. NOCTAMIDE [Suspect]
     Active Substance: LORMETAZEPAM
     Indication: PRODUCT USED FOR UNKNOWN INDICATION
     Dosage: UNK
     Route: 048
  8. LOXAPAC [Concomitant]
     Active Substance: LOXAPINE
     Indication: PRODUCT USED FOR UNKNOWN INDICATION
     Dosage: 50 MILLIGRAM DAILY;
     Route: 048
  9. ALPRAZOLAM. [Suspect]
     Active Substance: ALPRAZOLAM
     Indication: PRODUCT USED FOR UNKNOWN INDICATION
     Dosage: QHS
     Route: 048
  10. LEPTICUR [Suspect]
     Active Substance: TROPATEPINE HYDROCHLORIDE
     Indication: PRODUCT USED FOR UNKNOWN INDICATION
     Dosage: 1 DOSAGE FORMS DAILY; 1 DF, PM
     Route: 048
  11. RAMIPRIL. [Suspect]
     Active Substance: RAMIPRIL
     Indication: PRODUCT USED FOR UNKNOWN INDICATION
     Dosage: 5 MILLIGRAM DAILY; AM
     Route: 048
  12. BISOCE [Suspect]
     Active Substance: BISOPROLOL
     Dosage: 10 MG, PM
     Route: 048
  13. NOZINAN [Suspect]
     Active Substance: LEVOMEPROMAZINE
     Indication: PRODUCT USED FOR UNKNOWN INDICATION
     Dosage: UNK
     Route: 048
  14. NOCTAMIDE [Suspect]
     Active Substance: LORMETAZEPAM
     Dosage: 2 MG, HS
     Route: 048
  15. CLOZAPINE. [Suspect]
     Active Substance: CLOZAPINE
     Indication: PRODUCT USED FOR UNKNOWN INDICATION
     Dosage: 1400 MILLIGRAM DAILY; 700 MG, BID (3 TABLETS IN THE MORNING AND 4 TABLETS IN THE EVENING)
     Route: 048
  16. BISOCE [Suspect]
     Active Substance: BISOPROLOL
     Indication: PRODUCT USED FOR UNKNOWN INDICATION
     Dosage: UNK
     Route: 048
  17. DOLIPRANE [Suspect]
     Active Substance: ACETAMINOPHEN
     Dosage: 4 DF, 2 CAPSULES IN THE MORNING AND IN THE EVENING IF NEEDED
     Route: 048
  18. LOXAPAC [Concomitant]
     Active Substance: LOXAPINE
     Dosage: 100 MILLIGRAM DAILY;
     Route: 048

REACTIONS (7)
  - Toxicity to various agents [Fatal]
  - Completed suicide [Fatal]
  - Cardiac septal hypertrophy [Unknown]
  - Anxiety [Unknown]
  - Cardiac arrest [Fatal]
  - Hallucination [Unknown]
  - Alcohol poisoning [Unknown]

NARRATIVE: CASE EVENT DATE: 20160407
